FAERS Safety Report 8850128 (Version 6)
Quarter: 2013Q1

REPORT INFORMATION
  Report Type: Report from Study
  Country: JP (occurrence: JP)
  Receive Date: 20121019
  Receipt Date: 20130311
  Transmission Date: 20140127
  Serious: Yes (Life-Threatening, Hospitalization)
  Sender: FDA-Public Use
  Company Number: JP-PFIZER INC-2012259428

PATIENT
  Age: 71 Year
  Sex: Male
  Weight: 52 kg

DRUGS (7)
  1. XALKORI [Suspect]
     Indication: NON-SMALL CELL LUNG CANCER
     Dosage: 250 MG, 2X/DAY
     Route: 048
     Dates: start: 20120807, end: 20121008
  2. ADALAT CR [Concomitant]
     Indication: HYPERTENSION
     Dosage: 20 MG, 1X/DAY
     Route: 048
  3. DIOVAN ^NOVARTIS^ [Concomitant]
     Indication: HYPERTENSION
     Dosage: 80 MG, 1X/DAY
     Route: 048
  4. WARFARIN [Concomitant]
     Indication: CEREBRAL INFARCTION
     Dosage: 2 MG, 1X/DAY
     Route: 048
     Dates: start: 20120731
  5. BAYASPIRIN [Concomitant]
     Indication: CEREBRAL INFARCTION
     Dosage: 100 MG, 1X/DAY
     Route: 048
     Dates: start: 20120724
  6. CALCIUM LACTATE [Concomitant]
     Dosage: 3 G, 3X/DAY
     Route: 048
  7. ALFAROL [Concomitant]
     Dosage: 0.8 UG, UNK
     Route: 048

REACTIONS (1)
  - Pulmonary fibrosis [Recovered/Resolved with Sequelae]
